FAERS Safety Report 7074978-4 (Version None)
Quarter: 2010Q4

REPORT INFORMATION
  Report Type: 
  Country: None (occurrence: None)
  Receive Date: 20101029
  Receipt Date: 20100204
  Transmission Date: 20110411
  Serious: No
  Sender: FDA-Public Use
  Company Number: US-WYE-H13299110

PATIENT
  Age: 32 Year
  Sex: Female
  Weight: 52.21 kg

DRUGS (4)
  1. ALAVERT [Suspect]
     Indication: NASAL CONGESTION
     Route: 048
     Dates: start: 20100127
  2. ALAVERT [Suspect]
     Indication: RHINORRHOEA
  3. ALAVERT [Suspect]
     Indication: LACRIMATION INCREASED
  4. ALAVERT [Suspect]
     Indication: OROPHARYNGEAL PAIN

REACTIONS (2)
  - DRUG INEFFECTIVE [None]
  - OVERDOSE [None]
